FAERS Safety Report 8417266-3 (Version None)
Quarter: 2012Q2

REPORT INFORMATION
  Report Type: 
  Country: None (occurrence: None)
  Receive Date: 20120606
  Receipt Date: 20120530
  Transmission Date: 20120825
  Serious: No
  Sender: FDA-Public Use
  Company Number: US-ASTRAZENECA-2012SE27650

PATIENT
  Age: 58 Year
  Sex: Female

DRUGS (12)
  1. ZOLOFT [Concomitant]
     Route: 048
  2. SYNTHROID [Concomitant]
     Route: 048
  3. SYNTRALINE HCL [Concomitant]
     Route: 048
  4. PRAMIPEXOLE DIHYDROCHLORIDE [Concomitant]
     Route: 048
  5. SERTRALINE HYDROCHLORIDE [Concomitant]
     Route: 048
  6. CAPRELSA [Suspect]
     Indication: THYROID CANCER
     Route: 048
  7. CALCITRIOL [Concomitant]
     Route: 048
  8. CLONIDINE HCL [Concomitant]
     Route: 048
  9. IMODIUM A-D [Concomitant]
     Route: 048
  10. SIMVASTATIN [Concomitant]
     Route: 048
  11. ASPIRIN [Concomitant]
     Route: 048
  12. CALCIUM PLUS D [Concomitant]
     Dosage: 600-200 MG
     Route: 048

REACTIONS (7)
  - STOMATITIS [None]
  - HEADACHE [None]
  - DEPRESSION [None]
  - HYPOACUSIS [None]
  - VISION BLURRED [None]
  - EPISTAXIS [None]
  - BLOOD PRESSURE INCREASED [None]
